FAERS Safety Report 21057772 (Version 1)
Quarter: 2022Q3

REPORT INFORMATION
  Report Type: Spontaneous
  Country: US (occurrence: None)
  Receive Date: 20220707
  Receipt Date: 20220707
  Transmission Date: 20221026
  Serious: Yes (Hospitalization)
  Sender: FDA-Public Use
  Company Number: None

PATIENT
  Age: 90 Year
  Sex: Female

DRUGS (1)
  1. CAPECITABINE [Suspect]
     Active Substance: CAPECITABINE
     Dosage: 500MG BID ORAL
     Route: 048
     Dates: start: 202203

REACTIONS (7)
  - Temperature intolerance [None]
  - Headache [None]
  - Dyspnoea [None]
  - Musculoskeletal discomfort [None]
  - Panic attack [None]
  - Diarrhoea [None]
  - Blood potassium decreased [None]

NARRATIVE: CASE EVENT DATE: 20220620
